FAERS Safety Report 6957627-2 (Version None)
Quarter: 2010Q3

REPORT INFORMATION
  Report Type: 
  Country: None (occurrence: None)
  Receive Date: 20100831
  Receipt Date: 20100818
  Transmission Date: 20110219
  Serious: Yes (Other)
  Sender: FDA-Public Use
  Company Number: DE-ELI_LILLY_AND_COMPANY-DE201007001904

PATIENT
  Sex: Female
  Weight: 56 kg

DRUGS (3)
  1. FLUCTIN [Suspect]
     Indication: DEPRESSION
     Dosage: 10 MG, UNK
     Route: 048
     Dates: start: 20100627
  2. FLUCTIN [Suspect]
     Dosage: 20 MG, UNK
     Route: 048
     Dates: end: 20100708
  3. CONTRACEPTIVES [Concomitant]
     Route: 065

REACTIONS (2)
  - PARAESTHESIA [None]
  - SELF-INJURIOUS IDEATION [None]
